FAERS Safety Report 4831564-1 (Version None)
Quarter: 2005Q4

REPORT INFORMATION
  Report Type: 
  Country: None (occurrence: None)
  Receive Date: 20051118
  Receipt Date: 20050930
  Transmission Date: 20060501
  Serious: Yes (Other)
  Sender: FDA-Public Use
  Company Number: US-MERCK-0510USA01867

PATIENT
  Age: 43 Year
  Sex: Female
  Weight: 112 kg

DRUGS (31)
  1. VIOXX [Suspect]
     Indication: ARTHRITIS
     Route: 048
     Dates: start: 20000719, end: 20040901
  2. VIOXX [Suspect]
     Route: 048
     Dates: start: 20000719, end: 20040901
  3. ALPRAZOLAM [Concomitant]
     Route: 065
  4. BENZONATATE [Concomitant]
     Route: 065
  5. BIAXIN [Concomitant]
     Route: 065
  6. CARISOPRODOL [Concomitant]
     Route: 065
  7. CIPRO [Concomitant]
     Route: 065
  8. CLARINEX [Concomitant]
     Route: 065
  9. BETAMETHASONE DIPROPIONATE AND CLOTRIMAZOLE [Concomitant]
     Route: 065
  10. EFFEXOR [Concomitant]
     Route: 065
  11. ENALAPRIL MALEATE [Concomitant]
     Route: 065
  12. ACETAMINOPHEN AND HYDROCODONE BITARTRATE [Concomitant]
     Route: 065
  13. ACETAMINOPHEN AND CODEINE [Concomitant]
     Route: 065
  14. HYDROCODONE BITARTRATE [Concomitant]
     Route: 065
  15. KADIAN [Concomitant]
     Route: 065
  16. LEVALL G [Concomitant]
     Route: 065
  17. LEXAPRO [Concomitant]
     Route: 065
  18. LINDANE [Concomitant]
     Route: 065
  19. METHOCARBAMOL [Concomitant]
     Route: 065
  20. METOCLOPRAMIDE [Concomitant]
     Route: 065
  21. NASONEX [Concomitant]
     Route: 065
  22. OXYCONTIN [Concomitant]
     Route: 065
  23. PANLOR SS [Concomitant]
     Route: 065
  24. PENICILLIN (UNSPECIFIED) [Concomitant]
     Route: 065
  25. PREMARIN [Concomitant]
     Route: 065
  26. TOPROL-XL [Concomitant]
     Route: 065
  27. VERELAN PM [Concomitant]
     Route: 065
  28. WELLBUTRIN SR [Concomitant]
     Route: 065
  29. ZANAFLEX [Concomitant]
     Route: 065
  30. ZITHROMAX [Concomitant]
     Route: 065
  31. ZOLOFT [Concomitant]
     Route: 065

REACTIONS (1)
  - ISCHAEMIC STROKE [None]
